FAERS Safety Report 8691091 (Version 3)
Quarter: 2012Q4

REPORT INFORMATION
  Report Type: 
  Country: US (occurrence: US)
  Receive Date: 20120730
  Receipt Date: 20120914
  Transmission Date: 20130627
  Serious: Yes (Hospitalization, Other)
  Sender: FDA-Public Use
  Company Number: US-MSD-1207USA010774

PATIENT

DRUGS (4)
  1. PEGINTRON [Suspect]
     Indication: HEPATITIS C
     Dosage: 0.5 ml, UNK
     Route: 058
     Dates: start: 201203, end: 201204
  2. PEGINTRON [Suspect]
     Dosage: 0.4 ml, UNK
     Route: 058
     Dates: start: 201204
  3. VICTRELIS [Suspect]
     Indication: HEPATITIS C
     Dosage: 200 mg, UNK
     Route: 048
     Dates: start: 201204
  4. REBETOL [Suspect]
     Route: 048

REACTIONS (12)
  - Pancytopenia [Not Recovered/Not Resolved]
  - Dizziness [Not Recovered/Not Resolved]
  - Dyspnoea [Not Recovered/Not Resolved]
  - Headache [Not Recovered/Not Resolved]
  - Fatigue [Not Recovered/Not Resolved]
  - Influenza like illness [Not Recovered/Not Resolved]
  - Pain [Not Recovered/Not Resolved]
  - Ocular hyperaemia [Not Recovered/Not Resolved]
  - Ischaemia [Unknown]
  - Optic neuropathy [Recovering/Resolving]
  - Pain [None]
  - Dizziness [None]
